FAERS Safety Report 17160560 (Version 1)
Quarter: 2019Q4

REPORT INFORMATION
  Report Type: Spontaneous
  Country: JP (occurrence: JP)
  Receive Date: 20191216
  Receipt Date: 20191216
  Transmission Date: 20200122
  Serious: Yes (Other)
  Sender: FDA-Public Use
  Company Number: JP-009507513-1910JPN000463J

PATIENT
  Sex: Female

DRUGS (2)
  1. ROZEREM [Suspect]
     Active Substance: RAMELTEON
     Dosage: UNK
     Route: 065
     Dates: start: 2018
  2. BELSOMRA [Suspect]
     Active Substance: SUVOREXANT
     Indication: INSOMNIA
     Dosage: UNK
     Route: 048
     Dates: start: 2018

REACTIONS (9)
  - Helicobacter infection [Unknown]
  - Malaise [Unknown]
  - Middle insomnia [Unknown]
  - Somnolence [Unknown]
  - Drug ineffective [Unknown]
  - Abdominal pain upper [Unknown]
  - Headache [Unknown]
  - Insomnia [Unknown]
  - Pseudomonas infection [Unknown]

NARRATIVE: CASE EVENT DATE: 201801
